FAERS Safety Report 19772231 (Version 1)
Quarter: 2021Q3

REPORT INFORMATION
  Report Type: Spontaneous
  Country: US (occurrence: US)
  Receive Date: 20210901
  Receipt Date: 20210901
  Transmission Date: 20211014
  Serious: No
  Sender: FDA-Public Use
  Company Number: US-SA-2021SA287927

PATIENT
  Age: 6 Year

DRUGS (1)
  1. LUMIZYME [Suspect]
     Active Substance: ALGLUCOSIDASE ALFA
     Dosage: 25 MG/KG, QW

REACTIONS (3)
  - Urticaria [Unknown]
  - Muscular weakness [Unknown]
  - Intentional product misuse [Unknown]
